FAERS Safety Report 7445311-0 (Version None)
Quarter: 2011Q2

REPORT INFORMATION
  Report Type: 
  Country: None (occurrence: None)
  Receive Date: 20110429
  Receipt Date: 20100420
  Transmission Date: 20111010
  Serious: No
  Sender: FDA-Public Use
  Company Number: A0856511A

PATIENT
  Age: 72 Year
  Sex: Male

DRUGS (5)
  1. MULTI-VITAMIN [Concomitant]
  2. LOVAZA [Concomitant]
  3. ANTIHYPERTENSIVE [Concomitant]
  4. LEUKERAN [Suspect]
     Dosage: 1TAB THREE TIMES PER DAY
     Route: 048
  5. ALLOPURINOL [Concomitant]

REACTIONS (2)
  - INCORRECT STORAGE OF DRUG [None]
  - WHITE BLOOD CELL COUNT INCREASED [None]
